FAERS Safety Report 15613813 (Version 1)
Quarter: 2018Q4

REPORT INFORMATION
  Report Type: Report from Study
  Country: TR (occurrence: TR)
  Receive Date: 20181113
  Receipt Date: 20181113
  Transmission Date: 20190205
  Serious: Yes (Other)
  Sender: FDA-Public Use
  Company Number: TR-PFIZER INC-2018072381

PATIENT
  Age: 58 Year
  Sex: Female
  Weight: 84 kg

DRUGS (4)
  1. LORLATINIB [Suspect]
     Active Substance: LORLATINIB
     Dosage: 50 MG, 2X/DAY
     Route: 048
     Dates: start: 20171107, end: 20180127
  2. BELOC /00376902/ [Concomitant]
     Active Substance: METOPROLOL TARTRATE
     Indication: HYPERTENSION
     Dosage: 100 MG, 1X/DAY
     Route: 048
     Dates: start: 1995
  3. LORLATINIB [Suspect]
     Active Substance: LORLATINIB
     Dosage: 50 MG FOR 7 DAYS AND 3 DAYS OFF
     Route: 048
     Dates: start: 20180130, end: 20180502
  4. ASPIRIN /00002701/ [Concomitant]
     Active Substance: ASPIRIN
     Indication: PROPHYLAXIS
     Dosage: 100 MG, 1X/DAY
     Route: 048
     Dates: start: 1995

REACTIONS (7)
  - Hypercholesterolaemia [Recovering/Resolving]
  - Neuropathy peripheral [Recovered/Resolved]
  - Pulmonary embolism [Not Recovered/Not Resolved]
  - Hypertriglyceridaemia [Recovering/Resolving]
  - Pulmonary hypertension [Recovered/Resolved]
  - Anaemia [Recovered/Resolved]
  - Oedema peripheral [Recovered/Resolved]

NARRATIVE: CASE EVENT DATE: 20171130
